FAERS Safety Report 19046929 (Version 1)
Quarter: 2021Q1

REPORT INFORMATION
  Report Type: Report from Study
  Country: None (occurrence: US)
  Receive Date: 20210322
  Receipt Date: 20210322
  Transmission Date: 20210420
  Serious: Yes (Other)
  Sender: FDA-Public Use
  Company Number: US-ABBVIE-21K-163-3820229-00

PATIENT
  Age: 50 Year
  Sex: Male
  Weight: 61.29 kg

DRUGS (2)
  1. COVID?19 VACCINE [Concomitant]
     Indication: COVID-19 IMMUNISATION
     Dosage: MANUFACTURER: PFIZER
     Route: 030
     Dates: start: 20210310, end: 20210310
  2. HUMIRA [Suspect]
     Active Substance: ADALIMUMAB
     Indication: CROHN^S DISEASE
     Route: 058
     Dates: start: 2010

REACTIONS (11)
  - Blood creatinine increased [Recovering/Resolving]
  - Alopecia [Recovering/Resolving]
  - Thyroid cancer stage II [Recovering/Resolving]
  - Weight decreased [Recovering/Resolving]
  - White blood cell count increased [Recovered/Resolved]
  - Decreased appetite [Recovering/Resolving]
  - Ageusia [Recovering/Resolving]
  - Red blood cell count decreased [Recovered/Resolved]
  - Lymphoma [Recovering/Resolving]
  - Scar pain [Not Recovered/Not Resolved]
  - Tongue discomfort [Recovering/Resolving]

NARRATIVE: CASE EVENT DATE: 202101
